FAERS Safety Report 9854145 (Version 1)
Quarter: 2014Q1

REPORT INFORMATION
  Report Type: Spontaneous
  Country: US (occurrence: US)
  Receive Date: 20140129
  Receipt Date: 20140129
  Transmission Date: 20141002
  Serious: Yes (Other)
  Sender: FDA-Public Use
  Company Number: US-ROCHE-1339430

PATIENT
  Sex: 0

DRUGS (5)
  1. XELODA [Suspect]
     Indication: GALLBLADDER CANCER
     Route: 065
  2. HERCEPTIN [Suspect]
     Indication: GALLBLADDER CANCER
     Route: 065
  3. CISPLATIN [Concomitant]
  4. TAXOL [Concomitant]
  5. GEMZAR [Concomitant]

REACTIONS (2)
  - Toxicity to various agents [Unknown]
  - Gallbladder cancer recurrent [Unknown]
